FAERS Safety Report 16359602 (Version 1)
Quarter: 2019Q2

REPORT INFORMATION
  Report Type: Spontaneous
  Country: PE (occurrence: PE)
  Receive Date: 20190528
  Receipt Date: 20190528
  Transmission Date: 20190711
  Serious: Yes (Death, Other)
  Sender: FDA-Public Use
  Company Number: PE-AMGEN-PERSP2019082724

PATIENT
  Age: 84 Year
  Sex: Female

DRUGS (1)
  1. PROLIA [Suspect]
     Active Substance: DENOSUMAB
     Indication: OSTEOPOROSIS
     Dosage: 60 MILLIGRAM, CYCLICAL
     Route: 058
     Dates: start: 20181126, end: 20181126

REACTIONS (1)
  - Death [Fatal]

NARRATIVE: CASE EVENT DATE: 20190301
